FAERS Safety Report 23486048 (Version 2)
Quarter: 2024Q4

REPORT INFORMATION
  Report Type: Other
  Country: CN (occurrence: CN)
  Receive Date: 20240206
  Receipt Date: 20241211
  Transmission Date: 20250115
  Serious: Yes (Other)
  Sender: CHIESI
  Company Number: CN-CHIESI-2024CHF00476

PATIENT
  Age: 0 Year
  Sex: Male
  Weight: 0.9 kg

DRUGS (1)
  1. CUROSURF [Suspect]
     Active Substance: PORACTANT ALFA
     Indication: Neonatal respiratory distress syndrome
     Dosage: 180 MILLIGRAM, (1X)
     Route: 007
     Dates: start: 20240122, end: 20240122

REACTIONS (1)
  - Cyanosis neonatal [Recovered/Resolved]

NARRATIVE: CASE EVENT DATE: 20240122
